FAERS Safety Report 7414526-X (Version None)
Quarter: 2011Q2

REPORT INFORMATION
  Report Type: 
  Country: None (occurrence: None)
  Receive Date: 20110414
  Receipt Date: 20110412
  Transmission Date: 20111010
  Serious: Yes (Other)
  Sender: FDA-Public Use
  Company Number: UA-PFIZER INC-2011056151

PATIENT
  Age: 58 Year
  Sex: Male

DRUGS (1)
  1. LIPRIMAR [Suspect]
     Indication: MYOCARDIAL ISCHAEMIA
     Dosage: 10 MG, 1X/DAY
     Route: 048
     Dates: start: 20100101

REACTIONS (3)
  - SKIN EXFOLIATION [None]
  - PRURITUS [None]
  - HYPERSENSITIVITY [None]
